FAERS Safety Report 8491894-1 (Version None)
Quarter: 2012Q3

REPORT INFORMATION
  Report Type: 
  Country: None (occurrence: None)
  Receive Date: 20120706
  Receipt Date: 20111107
  Transmission Date: 20120928
  Serious: No
  Sender: FDA-Public Use
  Company Number: US-GLAXOSMITHKLINE-A0952182A

PATIENT
  Age: 84 Year
  Sex: Female

DRUGS (5)
  1. LEVOTHYROXINE SODIUM [Concomitant]
  2. FLOVENT [Suspect]
     Indication: BRONCHITIS
     Dosage: 2PUFF TWICE PER DAY
     Route: 055
     Dates: start: 20111017
  3. VITAMIN D [Concomitant]
  4. IRON PILLS [Concomitant]
  5. B-12 VITAMIN [Concomitant]

REACTIONS (2)
  - COUGH [None]
  - DRUG INEFFECTIVE [None]
